FAERS Safety Report 6835515-X (Version None)
Quarter: 2010Q3

REPORT INFORMATION
  Report Type: 
  Country: None (occurrence: None)
  Receive Date: 20100713
  Receipt Date: 20100630
  Transmission Date: 20110219
  Serious: Yes (Other)
  Sender: FDA-Public Use
  Company Number: PHHY2010DE41688

PATIENT
  Sex: Female

DRUGS (1)
  1. ACLASTA/ZOLEDRONATE T29581+A++OS [Suspect]
     Dosage: 5 MG, ONCE YEARLY
     Route: 042

REACTIONS (7)
  - ASTHENIA [None]
  - CHILLS [None]
  - DECREASED APPETITE [None]
  - DIABETES MELLITUS [None]
  - DIARRHOEA [None]
  - INFUSION RELATED REACTION [None]
  - PYREXIA [None]
